FAERS Safety Report 24938406 (Version 1)
Quarter: 2025Q1

REPORT INFORMATION
  Report Type: Spontaneous
  Country: US (occurrence: US)
  Receive Date: 20250206
  Receipt Date: 20250206
  Transmission Date: 20250409
  Serious: No
  Sender: SANOFI AVENTIS
  Company Number: US-SA-2025SA034750

PATIENT
  Age: 42 Year
  Sex: Female
  Weight: 93.18 kg

DRUGS (1)
  1. DUPIXENT [Suspect]
     Active Substance: DUPILUMAB
     Indication: Dermatitis atopic
     Dosage: 300 MG, QOW
     Route: 058
     Dates: start: 202408

REACTIONS (8)
  - Rash macular [Not Recovered/Not Resolved]
  - Skin haemorrhage [Recovering/Resolving]
  - Skin weeping [Recovering/Resolving]
  - Condition aggravated [Recovering/Resolving]
  - Muscle strain [Not Recovered/Not Resolved]
  - Dry skin [Recovering/Resolving]
  - Pruritus [Recovering/Resolving]
  - Injection site pain [Not Recovered/Not Resolved]

NARRATIVE: CASE EVENT DATE: 20250105
